FAERS Safety Report 5657761-3 (Version None)
Quarter: 2008Q1

REPORT INFORMATION
  Report Type: 
  Country: None (occurrence: None)
  Receive Date: 20080305
  Receipt Date: 20080220
  Transmission Date: 20080703
  Serious: Yes (Other)
  Sender: FDA-Public Use
  Company Number: 18418

PATIENT
  Age: 57 Year
  Sex: Female
  Weight: 83.7 kg

DRUGS (3)
  1. CARBOPLATIN [Suspect]
     Indication: BREAST CANCER
     Dosage: 731 MG IV
     Route: 042
     Dates: start: 20080103, end: 20080125
  2. DOCETAXEL [Concomitant]
  3. TRASTUZUMAB [Concomitant]

REACTIONS (3)
  - CHEST DISCOMFORT [None]
  - FLUSHING [None]
  - INFUSION RELATED REACTION [None]
